FAERS Safety Report 9339859 (Version 1)
Quarter: 2013Q2

REPORT INFORMATION
  Report Type: Spontaneous
  Country: US (occurrence: None)
  Receive Date: 20130607
  Receipt Date: 20130607
  Transmission Date: 20140414
  Serious: Yes (Disabling)
  Sender: FDA-Public Use
  Company Number: None

PATIENT
  Age: 58 Year
  Sex: Female
  Weight: 67.59 kg

DRUGS (2)
  1. TPN [Suspect]
     Indication: SURGERY
     Route: 041
     Dates: start: 20100410, end: 20100415
  2. LIPIDS [Suspect]
     Route: 041
     Dates: start: 20100410, end: 20100415

REACTIONS (7)
  - Hot flush [None]
  - Erythema [None]
  - Hyperhidrosis [None]
  - Impaired work ability [None]
  - Rash [None]
  - Scar [None]
  - Activities of daily living impaired [None]
